FAERS Safety Report 7291301-0 (Version None)
Quarter: 2011Q1

REPORT INFORMATION
  Report Type: 
  Country: None (occurrence: None)
  Receive Date: 20110214
  Receipt Date: 20110209
  Transmission Date: 20110831
  Serious: Yes (Death)
  Sender: FDA-Public Use
  Company Number: A0773162A

PATIENT
  Age: 54 Year
  Sex: Male
  Weight: 93.2 kg

DRUGS (6)
  1. COZAAR [Concomitant]
  2. NITROGLYCERIN [Concomitant]
     Dates: start: 20010401
  3. GLUCOTROL [Concomitant]
  4. AVANDIA [Suspect]
     Indication: DIABETES MELLITUS
     Dosage: 4MG PER DAY
     Route: 048
     Dates: end: 20061120
  5. GLUCOPHAGE [Concomitant]
  6. LIPITOR [Concomitant]

REACTIONS (2)
  - DEATH [None]
  - MYOCARDIAL INFARCTION [None]
